FAERS Safety Report 17971221 (Version 4)
Quarter: 2021Q1

REPORT INFORMATION
  Report Type: Report from Study
  Country: BR (occurrence: BR)
  Receive Date: 20200701
  Receipt Date: 20210323
  Transmission Date: 20210419
  Serious: Yes (Hospitalization)
  Sender: FDA-Public Use
  Company Number: BR-CELGENEUS-BRA-20200607542

PATIENT
  Age: 69 Year
  Sex: Female
  Weight: 72.2 kg

DRUGS (15)
  1. INDAPAMIDE. [Concomitant]
     Active Substance: INDAPAMIDE
     Indication: HYPERTENSION
     Dosage: 1.5 MILLIGRAM
     Route: 048
     Dates: start: 19980101
  2. LACRIMA PLUS [Concomitant]
     Active Substance: DEXTRAN 70\HYPROMELLOSES
     Indication: EYE DISORDER PROPHYLAXIS
     Dosage: 2 DROPS
     Route: 047
     Dates: start: 20180510
  3. METFORMIN [Concomitant]
     Active Substance: METFORMIN HYDROCHLORIDE
     Indication: DIABETES MELLITUS
     Dosage: TOTAL DAILY DOSE: 850 MG; FORMULATION PILL
     Route: 048
     Dates: start: 20120101
  4. ONDANSETRON [Concomitant]
     Active Substance: ONDANSETRON
     Indication: PREMEDICATION
     Dosage: 8 MILLIGRAM
     Route: 042
     Dates: start: 20190221, end: 20190221
  5. NEOMYCIN. [Concomitant]
     Active Substance: NEOMYCIN
     Indication: DYSHIDROTIC ECZEMA
     Dosage: 1 PERCENT
     Route: 061
     Dates: start: 20190221, end: 20190310
  6. BETAMETHASONE. [Concomitant]
     Active Substance: BETAMETHASONE
     Indication: DYSHIDROTIC ECZEMA
     Dosage: 1 DOSAGE FORMS
     Route: 061
     Dates: start: 20190207
  7. DEXAMETHASONE. [Concomitant]
     Active Substance: DEXAMETHASONE
     Indication: PREMEDICATION
     Dosage: 8 MILLIGRAM
     Route: 042
     Dates: start: 20190221, end: 20190221
  8. PEMBROLIZUMAB (MK?3475) [Suspect]
     Active Substance: PEMBROLIZUMAB
     Indication: TRIPLE NEGATIVE BREAST CANCER
     Route: 042
     Dates: start: 20171227, end: 20190131
  9. DIPHENHYDRAMINE. [Concomitant]
     Active Substance: DIPHENHYDRAMINE
     Indication: PREMEDICATION
     Dosage: 50 MILLIGRAM
     Route: 042
     Dates: start: 20190221, end: 20190221
  10. METHOTREXATE. [Concomitant]
     Active Substance: METHOTREXATE
     Indication: PRODUCT USED FOR UNKNOWN INDICATION
     Route: 065
     Dates: start: 20190810
  11. ABRAXANE [Suspect]
     Active Substance: PACLITAXEL
     Indication: TRIPLE NEGATIVE BREAST CANCER
     Dosage: 100 MILLIGRAM/SQ. METER
     Route: 042
     Dates: start: 20171227, end: 20190214
  12. ATENOLOL. [Concomitant]
     Active Substance: ATENOLOL
     Indication: HYPERTENSION
     Dosage: 50 MILLIGRAM
     Route: 048
     Dates: start: 19980101
  13. RANITIDINE. [Concomitant]
     Active Substance: RANITIDINE
     Indication: PREMEDICATION
     Route: 042
     Dates: start: 20190221, end: 20190221
  14. ABRAXANE [Suspect]
     Active Substance: PACLITAXEL
     Dosage: 100 MILLIGRAM/SQ. METER
     Route: 042
     Dates: start: 20190221, end: 20190221
  15. PEMBROLIZUMAB (MK?3475) [Suspect]
     Active Substance: PEMBROLIZUMAB
     Route: 042
     Dates: start: 20190221, end: 20190221

REACTIONS (1)
  - Polyarthritis [Recovered/Resolved with Sequelae]

NARRATIVE: CASE EVENT DATE: 20190222
